FAERS Safety Report 7299034-1 (Version None)
Quarter: 2011Q1

REPORT INFORMATION
  Report Type: 
  Country: None (occurrence: None)
  Receive Date: 20110217
  Receipt Date: 20110209
  Transmission Date: 20110831
  Serious: Yes (Other)
  Sender: FDA-Public Use
  Company Number: US-ASTRAZENECA-2007UW05037

PATIENT
  Sex: Female
  Weight: 117.9 kg

DRUGS (5)
  1. ABILIFY [Concomitant]
  2. RISPERDAL [Concomitant]
     Dosage: 0.5 TO 2 MG
     Dates: start: 20030101, end: 20030501
  3. SEROQUEL [Suspect]
     Indication: DEPRESSION
     Dosage: 100 TO 600 MG DAILY
     Route: 048
     Dates: start: 20030722, end: 20060808
  4. SEROQUEL [Suspect]
     Indication: ANXIETY
     Dosage: 100 TO 600 MG DAILY
     Route: 048
     Dates: start: 20030722, end: 20060808
  5. ZOLOFT [Concomitant]
     Dosage: 100 TO 300 MG DAILY
     Dates: start: 20030101, end: 20060101

REACTIONS (6)
  - GALLBLADDER DISORDER [None]
  - BLOOD CHOLESTEROL INCREASED [None]
  - HYPERLIPIDAEMIA [None]
  - GASTRIC DISORDER [None]
  - TYPE 2 DIABETES MELLITUS [None]
  - BLOOD TRIGLYCERIDES INCREASED [None]
